FAERS Safety Report 19155660 (Version 2)
Quarter: 2021Q2

REPORT INFORMATION
  Report Type: Spontaneous
  Country: US (occurrence: US)
  Receive Date: 20210419
  Receipt Date: 20210514
  Transmission Date: 20210717
  Serious: Yes (Other)
  Sender: FDA-Public Use
  Company Number: US-ORGANON-O2104USA001236

PATIENT
  Sex: Female

DRUGS (1)
  1. NEXPLANON [Suspect]
     Active Substance: ETONOGESTREL
     Indication: CONTRACEPTION
     Dosage: 1 IMPLANT,68 MILLIGRAM,ONCE EVERY 3 YEAR
     Route: 059
     Dates: start: 202009

REACTIONS (2)
  - Haematochezia [Unknown]
  - Adverse event [Unknown]

NARRATIVE: CASE EVENT DATE: 2021
